FAERS Safety Report 9228671 (Version 1)
Quarter: 2013Q2

REPORT INFORMATION
  Report Type: Spontaneous
  Country: US (occurrence: US)
  Receive Date: 20130412
  Receipt Date: 20130412
  Transmission Date: 20140414
  Serious: No
  Sender: FDA-Public Use
  Company Number: US-ASTRAZENECA-2013SE20761

PATIENT
  Age: 64 Year
  Sex: Female
  Weight: 73 kg

DRUGS (4)
  1. NEXIUM [Suspect]
     Indication: ULCER
     Route: 048
  2. LOSARTAN [Concomitant]
  3. HCTZ [Concomitant]
  4. CLONIDINE [Concomitant]

REACTIONS (3)
  - Chest pain [Unknown]
  - Abdominal distension [Unknown]
  - Off label use [Unknown]
